APPROVED DRUG PRODUCT: METHADONE HYDROCHLORIDE
Active Ingredient: METHADONE HYDROCHLORIDE
Strength: 10MG/ML
Dosage Form/Route: INJECTABLE;INJECTION
Application: A218252 | Product #001 | TE Code: AP
Applicant: BRECKENRIDGE PHARMACEUTICAL INC
Approved: Dec 16, 2024 | RLD: No | RS: No | Type: RX